FAERS Safety Report 9742624 (Version 2)
Quarter: 2015Q3

REPORT INFORMATION
  Report Type: Spontaneous
  Country: US (occurrence: US)
  Receive Date: 20131210
  Receipt Date: 20150804
  Transmission Date: 20151125
  Serious: No
  Sender: FDA-Public Use
  Company Number: US-GILEAD-2009-0024734

PATIENT
  Age: 71 Year
  Sex: Female
  Weight: 99.79 kg

DRUGS (19)
  1. LESCOL [Concomitant]
     Active Substance: FLUVASTATIN SODIUM
  2. TOPROL XL [Concomitant]
     Active Substance: METOPROLOL SUCCINATE
  3. LETAIRIS [Suspect]
     Active Substance: AMBRISENTAN
     Indication: PULMONARY ARTERIAL HYPERTENSION
     Route: 048
     Dates: start: 20081219
  4. ASPIRIN. [Concomitant]
     Active Substance: ASPIRIN
  5. CALCIUM [Concomitant]
     Active Substance: CALCIUM
  6. OXYGEN. [Concomitant]
     Active Substance: OXYGEN
  7. CENTRUM [Concomitant]
     Active Substance: VITAMINS
  8. HYDROCHLORATHIAZIDE 25 [Concomitant]
  9. XALATAN [Concomitant]
     Active Substance: LATANOPROST
  10. DILTIAZEM [Concomitant]
     Active Substance: DILTIAZEM
  11. TORSEMIDE. [Concomitant]
     Active Substance: TORSEMIDE
  12. ACETAZOLAMIDE. [Concomitant]
     Active Substance: ACETAZOLAMIDE
  13. LASIX [Concomitant]
     Active Substance: FUROSEMIDE
  14. RAMIPRIL. [Concomitant]
     Active Substance: RAMIPRIL
  15. REPLIVA 21-7 [Concomitant]
  16. TRICOR [Concomitant]
     Active Substance: FENOFIBRATE
  17. METAGLIP 5/500 [Concomitant]
  18. LEVEMIR [Concomitant]
     Active Substance: INSULIN DETEMIR
  19. LEVOXYL [Concomitant]
     Active Substance: LEVOTHYROXINE SODIUM

REACTIONS (3)
  - Fluid retention [Unknown]
  - Restless legs syndrome [Unknown]
  - Pruritus [Unknown]
